FAERS Safety Report 6855856-X (Version None)
Quarter: 2010Q2

REPORT INFORMATION
  Report Type: 
  Country: None (occurrence: None)
  Receive Date: 20100629
  Receipt Date: 20100322
  Transmission Date: 20101027
  Serious: No
  Sender: FDA-Public Use
  Company Number: US-WYE-H14312010

PATIENT
  Age: 67 Year
  Sex: Female
  Weight: 77.63 kg

DRUGS (4)
  1. PRISTIQ [Suspect]
     Indication: DEPRESSION
     Dosage: 50 MG 1X PER 1 DAY, ORAL : 50 MG 1X PER 1 DAY, ORAL : 50 MG 1X PER 1 DAY, ORAL
     Route: 048
     Dates: start: 20090701, end: 20090701
  2. PRISTIQ [Suspect]
     Indication: DEPRESSION
     Dosage: 50 MG 1X PER 1 DAY, ORAL : 50 MG 1X PER 1 DAY, ORAL : 50 MG 1X PER 1 DAY, ORAL
     Route: 048
     Dates: start: 20090801, end: 20090901
  3. PRISTIQ [Suspect]
     Indication: DEPRESSION
     Dosage: 50 MG 1X PER 1 DAY, ORAL : 50 MG 1X PER 1 DAY, ORAL : 50 MG 1X PER 1 DAY, ORAL
     Route: 048
     Dates: start: 20100101
  4. METFORMIN HCL [Concomitant]

REACTIONS (12)
  - AGGRESSION [None]
  - APATHY [None]
  - HYPERACUSIS [None]
  - IRRITABILITY [None]
  - LOGORRHOEA [None]
  - NEGLECT OF PERSONAL APPEARANCE [None]
  - OBSESSIVE-COMPULSIVE DISORDER [None]
  - PAROSMIA [None]
  - SPEECH DISORDER [None]
  - TACHYPHRENIA [None]
  - TINNITUS [None]
  - VITAMIN D DECREASED [None]
